FAERS Safety Report 7006487-2 (Version None)
Quarter: 2010Q3

REPORT INFORMATION
  Report Type: 
  Country: None (occurrence: None)
  Receive Date: 20100921
  Receipt Date: 20100921
  Transmission Date: 20110219
  Serious: No
  Sender: FDA-Public Use
  Company Number: None

PATIENT
  Age: 54 Year
  Sex: Male
  Weight: 95.2554 kg

DRUGS (4)
  1. OXYCONTIN [Suspect]
     Indication: INTERVERTEBRAL DISC DEGENERATION
     Dosage: 40MG 3 TIMES A DAY PO
     Route: 048
     Dates: start: 19980501, end: 20100915
  2. OXYCONTIN [Suspect]
     Indication: NERVE INJURY
     Dosage: 40MG 3 TIMES A DAY PO
     Route: 048
     Dates: start: 19980501, end: 20100915
  3. OXYCONTIN [Suspect]
     Indication: INTERVERTEBRAL DISC DEGENERATION
     Dosage: 20MG 3 TIMES A DAY PO
     Route: 048
     Dates: start: 19980501, end: 20100915
  4. OXYCONTIN [Suspect]
     Indication: NERVE INJURY
     Dosage: 20MG 3 TIMES A DAY PO
     Route: 048
     Dates: start: 19980501, end: 20100915

REACTIONS (8)
  - CONDITION AGGRAVATED [None]
  - CONSTIPATION [None]
  - DRUG EFFECT DECREASED [None]
  - DRUG EFFECT DELAYED [None]
  - GAIT DISTURBANCE [None]
  - IRRITABLE BOWEL SYNDROME [None]
  - PRODUCT FORMULATION ISSUE [None]
  - PRODUCT QUALITY ISSUE [None]
